FAERS Safety Report 7540616-7 (Version None)
Quarter: 2011Q2

REPORT INFORMATION
  Report Type: 
  Country: None (occurrence: None)
  Receive Date: 20110603
  Receipt Date: 20110524
  Transmission Date: 20111010
  Serious: Yes (Other)
  Sender: FDA-Public Use
  Company Number: FK201101084

PATIENT
  Age: 72 Year
  Sex: Female

DRUGS (3)
  1. CARBOPLATIN [Suspect]
     Indication: NON-SMALL CELL LUNG CANCER STAGE IIIA
  2. CETUXIMAB (CETUXIMAB) (CETUXIMAB) [Suspect]
     Indication: NON-SMALL CELL LUNG CANCER STAGE IIIA
  3. PACLITAXEL [Suspect]
     Indication: NON-SMALL CELL LUNG CANCER STAGE IIIA

REACTIONS (8)
  - AGGRESSION [None]
  - PARANOIA [None]
  - DELIRIUM [None]
  - DISORIENTATION [None]
  - ATTENTION DEFICIT/HYPERACTIVITY DISORDER [None]
  - CONFUSIONAL STATE [None]
  - COGNITIVE DISORDER [None]
  - THINKING ABNORMAL [None]
